FAERS Safety Report 6162990-9 (Version None)
Quarter: 2009Q2

REPORT INFORMATION
  Report Type: 
  Country: None (occurrence: None)
  Receive Date: 20090420
  Receipt Date: 20090408
  Transmission Date: 20091009
  Serious: Yes (Hospitalization)
  Sender: FDA-Public Use
  Company Number: TRP_06163_2009

PATIENT
  Sex: Male

DRUGS (4)
  1. RIBASPHERE [Suspect]
     Indication: HEPATIC CIRRHOSIS
     Dosage: 400 MG, DAILY
     Dates: start: 20090318
  2. RIBASPHERE [Suspect]
     Indication: HEPATITIS C
     Dosage: 400 MG, DAILY
     Dates: start: 20090318
  3. PEGASYS [Suspect]
     Indication: HEPATIC CIRRHOSIS
     Dosage: (90 MICROGRAMS 1X/WEEK), (DF), (DF)
     Dates: start: 20090318
  4. PEGASYS [Suspect]
     Indication: HEPATITIS C
     Dosage: (90 MICROGRAMS 1X/WEEK), (DF), (DF)
     Dates: start: 20090318

REACTIONS (2)
  - BLOOD CREATININE INCREASED [None]
  - LIVER DISORDER [None]
